FAERS Safety Report 10545224 (Version 1)
Quarter: 2014Q4

REPORT INFORMATION
  Report Type: Spontaneous
  Country: CH (occurrence: CH)
  Receive Date: 20141027
  Receipt Date: 20141027
  Transmission Date: 20150529
  Serious: Yes (Hospitalization, Other)
  Sender: FDA-Public Use
  Company Number: CH-SA-2014SA142903

PATIENT
  Age: 82 Year
  Sex: Female
  Weight: 47 kg

DRUGS (8)
  1. DEXAMETHASONE. [Concomitant]
     Active Substance: DEXAMETHASONE
     Dosage: 1 PER 1CYCLIC
     Dates: start: 20140918, end: 20140918
  2. PANTOZOL [Concomitant]
     Active Substance: PANTOPRAZOLE SODIUM
  3. ELTROXIN [Concomitant]
     Active Substance: LEVOTHYROXINE
  4. ELOXATIN [Suspect]
     Active Substance: OXALIPLATIN
     Indication: GASTRIC CANCER
     Dosage: FORM: INFUSION AMPOULES, VIALS/BOTTLES, ELOXANTINE 180 NN IN VITRO ON 18 SEPTEMBER, 2014 FOR 3 HOURS
     Route: 041
     Dates: start: 20140918, end: 20140918
  5. CALCIMAGON [Concomitant]
     Active Substance: CALCIUM
  6. EPIRUBICIN [Concomitant]
     Active Substance: EPIRUBICIN
     Dosage: 1 PER 1CYCLIC
     Dates: start: 20140918, end: 20140918
  7. ALOXI [Concomitant]
     Active Substance: PALONOSETRON HYDROCHLORIDE
     Dosage: 1 PER 1CYCLIC.
     Dates: start: 20140918, end: 20140918
  8. LODOZ [Concomitant]
     Active Substance: BISOPROLOL FUMARATE\HYDROCHLOROTHIAZIDE

REACTIONS (7)
  - Romberg test positive [Recovered/Resolved]
  - Dysphagia [Recovered/Resolved]
  - Paraesthesia [Recovered/Resolved]
  - Dysarthria [Recovered/Resolved]
  - Ataxia [Recovered/Resolved]
  - Balance disorder [Recovered/Resolved]
  - Central nervous system lesion [Unknown]

NARRATIVE: CASE EVENT DATE: 201409
